FAERS Safety Report 4377790-X (Version None)
Quarter: 2004Q2

REPORT INFORMATION
  Report Type: 
  Country: None (occurrence: None)
  Receive Date: 20040608
  Receipt Date: 20040525
  Transmission Date: 20050107
  Serious: Yes (Hospitalization)
  Sender: FDA-Public Use
  Company Number: 2004AP02911

PATIENT
  Age: 79 Year
  Sex: Male

DRUGS (7)
  1. IRESSA [Suspect]
     Indication: LUNG ADENOCARCINOMA
     Dosage: 250 MG DAILY PO
     Route: 048
     Dates: start: 20030612, end: 20030625
  2. MUCODYNE [Concomitant]
  3. MUCOSOLVAN [Concomitant]
  4. BISOLVON [Concomitant]
  5. ACINON [Concomitant]
  6. PROMAC  /JPN/ [Concomitant]
  7. AZUCURENIN S [Concomitant]

REACTIONS (8)
  - ASTHMA [None]
  - ENTERITIS [None]
  - EOSINOPHIL PERCENTAGE INCREASED [None]
  - INTERSTITIAL LUNG DISEASE [None]
  - LYMPHOCYTIC INFILTRATION [None]
  - PNEUMONIA BACTERIAL [None]
  - PULMONARY FIBROSIS [None]
  - RASH [None]
